FAERS Safety Report 25314476 (Version 6)
Quarter: 2025Q3

REPORT INFORMATION
  Report Type: Report from Study
  Country: RU (occurrence: RU)
  Receive Date: 20250514
  Receipt Date: 20250918
  Transmission Date: 20251021
  Serious: Yes (Hospitalization, Other)
  Sender: TAKEDA
  Company Number: RU-TAKEDA-2025TUS036860

PATIENT
  Age: 40 Year
  Sex: Female

DRUGS (8)
  1. TEDUGLUTIDE [Suspect]
     Active Substance: TEDUGLUTIDE
     Indication: Short-bowel syndrome
  2. TEDUGLUTIDE [Suspect]
     Active Substance: TEDUGLUTIDE
     Dosage: UNK UNK, QOD
     Dates: start: 20250417
  3. TEDUGLUTIDE [Suspect]
     Active Substance: TEDUGLUTIDE
  4. TEDUGLUTIDE [Suspect]
     Active Substance: TEDUGLUTIDE
  5. TEDUGLUTIDE [Suspect]
     Active Substance: TEDUGLUTIDE
  6. TEDUGLUTIDE [Suspect]
     Active Substance: TEDUGLUTIDE
  7. CREON [Suspect]
     Active Substance: PANCRELIPASE AMYLASE\PANCRELIPASE LIPASE\PANCRELIPASE PROTEASE
     Indication: Product used for unknown indication
  8. LOPERAMIDE [Suspect]
     Active Substance: LOPERAMIDE
     Indication: Diarrhoea

REACTIONS (31)
  - Nephrolithiasis [Unknown]
  - Gastritis erosive [Unknown]
  - Haematochezia [Recovered/Resolved]
  - Faeces hard [Recovered/Resolved]
  - Pain [Recovered/Resolved]
  - Burning sensation [Recovering/Resolving]
  - Dysuria [Not Recovered/Not Resolved]
  - Urine output increased [Recovered/Resolved]
  - Body temperature increased [Unknown]
  - Dry skin [Recovered/Resolved]
  - Frequent bowel movements [Recovered/Resolved]
  - Weight decreased [Unknown]
  - Diarrhoea [Unknown]
  - Abnormal faeces [Unknown]
  - Thirst [Unknown]
  - Dehydration [Unknown]
  - Muscle spasms [Unknown]
  - Gait disturbance [Unknown]
  - Peripheral swelling [Unknown]
  - Gastrointestinal pain [Unknown]
  - Anal fissure [Unknown]
  - Abscess [Unknown]
  - Incorrect dose administered [Recovered/Resolved]
  - Pain in extremity [Unknown]
  - Insomnia [Not Recovered/Not Resolved]
  - Decreased appetite [Not Recovered/Not Resolved]
  - Abdominal pain upper [Unknown]
  - Nausea [Unknown]
  - Oedema peripheral [Unknown]
  - Abdominal distension [Not Recovered/Not Resolved]
  - Abdominal pain [Unknown]

NARRATIVE: CASE EVENT DATE: 20250401
